FAERS Safety Report 6839011-5 (Version None)
Quarter: 2010Q3

REPORT INFORMATION
  Report Type: 
  Country: None (occurrence: None)
  Receive Date: 20100713
  Receipt Date: 20090108
  Transmission Date: 20110219
  Serious: Yes (Hospitalization, Other)
  Sender: FDA-Public Use
  Company Number: US-PFIZER INC-2007039239

PATIENT
  Age: 45 Year
  Sex: Female
  Weight: 86.168 kg

DRUGS (17)
  1. CHANTIX [Suspect]
     Dosage: BID: EVERYDAY
     Route: 048
     Dates: start: 20070801
  2. DILAUDID [Concomitant]
  3. MORPHINE [Concomitant]
  4. BACLOFEN [Concomitant]
  5. REGLAN [Concomitant]
     Indication: NAUSEA
  6. NEURONTIN [Concomitant]
  7. CELEBREX [Concomitant]
  8. LANTUS [Concomitant]
     Indication: TYPE 2 DIABETES MELLITUS
  9. DOCUSATE [Concomitant]
  10. XANAX [Concomitant]
  11. DETROL LA [Concomitant]
  12. KLONOPIN [Concomitant]
  13. PAXIL [Concomitant]
  14. SYNTHROID [Concomitant]
  15. ADVAIR DISKUS 100/50 [Concomitant]
     Indication: AGITATION
  16. NEUROLAX [Concomitant]
  17. INSULIN [Concomitant]

REACTIONS (22)
  - ABDOMINAL DISTENSION [None]
  - ABNORMAL DREAMS [None]
  - ANXIETY [None]
  - CONSTIPATION [None]
  - CRYING [None]
  - DEPRESSION [None]
  - FATIGUE [None]
  - FRUSTRATION [None]
  - GINGIVAL BLEEDING [None]
  - HEADACHE [None]
  - MALAISE [None]
  - MUSCLE SPASMS [None]
  - NAUSEA [None]
  - NERVOUSNESS [None]
  - NIGHTMARE [None]
  - PSYCHIATRIC SYMPTOM [None]
  - PSYCHOMOTOR HYPERACTIVITY [None]
  - STRESS [None]
  - SURGERY [None]
  - TOBACCO USER [None]
  - VOMITING [None]
  - WEIGHT INCREASED [None]
